FAERS Safety Report 4805318-6 (Version None)
Quarter: 2005Q4

REPORT INFORMATION
  Report Type: 
  Country: None (occurrence: None)
  Receive Date: 20051020
  Receipt Date: 20050606
  Transmission Date: 20060501
  Serious: Yes (Hospitalization, Disabling, Other)
  Sender: FDA-Public Use
  Company Number: US-MERCK-0506USA01076

PATIENT
  Age: 72 Year
  Sex: Male
  Weight: 85 kg

DRUGS (3)
  1. VIOXX [Suspect]
     Indication: SHOULDER PAIN
     Route: 048
     Dates: start: 20040301, end: 20040901
  2. VIOXX [Suspect]
     Indication: NECK PAIN
     Route: 048
     Dates: start: 20040301, end: 20040901
  3. BUSPAR [Concomitant]
     Indication: DEPRESSION
     Route: 065
     Dates: start: 20000101, end: 20040401

REACTIONS (16)
  - ABDOMINAL PAIN LOWER [None]
  - ANHEDONIA [None]
  - ANXIETY [None]
  - ARTHRALGIA [None]
  - BACK PAIN [None]
  - CEREBROVASCULAR ACCIDENT [None]
  - ERECTILE DYSFUNCTION [None]
  - GASTROOESOPHAGEAL REFLUX DISEASE [None]
  - HAEMATOCHEZIA [None]
  - HIP ARTHROPLASTY [None]
  - INJURY [None]
  - MYALGIA [None]
  - NEOPLASM [None]
  - PAIN IN EXTREMITY [None]
  - PELVIC PAIN [None]
  - WEIGHT DECREASED [None]
